FAERS Safety Report 5609218-3 (Version None)
Quarter: 2008Q1

REPORT INFORMATION
  Report Type: 
  Country: None (occurrence: None)
  Receive Date: 20080129
  Receipt Date: 20080129
  Transmission Date: 20080703
  Serious: Yes (Other)
  Sender: FDA-Public Use
  Company Number: None

PATIENT
  Age: 66 Year
  Sex: Female
  Weight: 65.7716 kg

DRUGS (1)
  1. VYTORIN [Suspect]
     Indication: BLOOD CHOLESTEROL
     Dosage: 1 TAB DAILY PO
     Route: 048
     Dates: start: 20070402, end: 20071201

REACTIONS (4)
  - BLOOD CHOLESTEROL INCREASED [None]
  - DIZZINESS [None]
  - GAIT DISTURBANCE [None]
  - MYALGIA [None]
